FAERS Safety Report 9218145 (Version 1)
Quarter: 2013Q2

REPORT INFORMATION
  Report Type: Report from Study
  Country: US (occurrence: US)
  Receive Date: 20130408
  Receipt Date: 20130408
  Transmission Date: 20140414
  Serious: Yes (Death)
  Sender: FDA-Public Use
  Company Number: US-BAXTER-2013BAX012988

PATIENT
  Sex: 0

DRUGS (6)
  1. CYTOXAN? (CYCLOPHOSPHAMIDE FOR INJECTION, USP) [Suspect]
     Indication: BONE MARROW CONDITIONING REGIMEN
     Dosage: X 4
     Route: 065
  2. BUSULFAN [Suspect]
     Indication: BONE MARROW CONDITIONING REGIMEN
     Dosage: 0.8-1.0 MG/KG  X4  DAYS -7,-6
     Route: 065
  3. FLUDARABINE [Suspect]
     Indication: BONE MARROW CONDITIONING REGIMEN
     Route: 065
  4. ATG RABBIT [Suspect]
     Indication: BONE MARROW CONDITIONING REGIMEN
     Route: 065
  5. CYCLOSPORINE [Concomitant]
     Indication: BONE MARROW CONDITIONING REGIMEN
  6. FILGRASTIM [Concomitant]
     Indication: BONE MARROW CONDITIONING REGIMEN

REACTIONS (1)
  - Multi-organ failure [Fatal]
